FAERS Safety Report 6603611-8 (Version None)
Quarter: 2010Q1

REPORT INFORMATION
  Report Type: 
  Country: None (occurrence: None)
  Receive Date: 20100226
  Receipt Date: 20100219
  Transmission Date: 20100710
  Serious: No
  Sender: FDA-Public Use
  Company Number: A0826882A

PATIENT
  Age: 66 Year
  Sex: Female

DRUGS (2)
  1. VALTREX [Suspect]
     Route: 048
     Dates: start: 20090101
  2. ZOVIRAX [Suspect]
     Dosage: 1APP THREE TIMES PER DAY
     Route: 061
     Dates: start: 20090101

REACTIONS (2)
  - DRUG INEFFECTIVE [None]
  - PRODUCT QUALITY ISSUE [None]
